FAERS Safety Report 9675552 (Version 2)
Quarter: 2013Q4

REPORT INFORMATION
  Report Type: Spontaneous
  Country: US (occurrence: US)
  Receive Date: 20131107
  Receipt Date: 20131227
  Transmission Date: 20140711
  Serious: No
  Sender: FDA-Public Use
  Company Number: US-PFIZER INC-2013315999

PATIENT
  Sex: Female

DRUGS (1)
  1. CELEBREX [Suspect]
     Indication: OSTEITIS
     Dosage: 200 MG, 1X/DAY
     Dates: start: 20131016

REACTIONS (3)
  - Burning sensation [Not Recovered/Not Resolved]
  - Drug effect incomplete [Unknown]
  - Renal disorder [Unknown]
